FAERS Safety Report 18522750 (Version 1)
Quarter: 2020Q4

REPORT INFORMATION
  Report Type: Spontaneous
  Country: US (occurrence: US)
  Receive Date: 20201119
  Receipt Date: 20201119
  Transmission Date: 20210114
  Serious: Yes (Hospitalization)
  Sender: FDA-Public Use
  Company Number: US-AMNEAL PHARMACEUTICALS-2020-AMRX-03390

PATIENT
  Sex: Female
  Weight: 7.21 kg

DRUGS (2)
  1. VIGABATRIN. [Suspect]
     Active Substance: VIGABATRIN
     Indication: SEIZURE
     Dosage: 500 MILLIGRAM, 2 /DAY
     Route: 048
     Dates: start: 20181217
  2. VIGABATRIN. [Suspect]
     Active Substance: VIGABATRIN
     Dosage: 500 MILLIGRAM, 2 /DAY
     Route: 048

REACTIONS (3)
  - Seizure [Recovering/Resolving]
  - Gastritis [Unknown]
  - Vomiting [Recovering/Resolving]
